FAERS Safety Report 5871390-8 (Version None)
Quarter: 2008Q3

REPORT INFORMATION
  Report Type: 
  Country: None (occurrence: None)
  Receive Date: 20080902
  Receipt Date: 20080822
  Transmission Date: 20090109
  Serious: Yes (Life-Threatening, Other)
  Sender: FDA-Public Use
  Company Number: 2008SP017211

PATIENT
  Age: 3 Year
  Sex: Female

DRUGS (6)
  1. TEMOZOLOMIDE [Suspect]
     Indication: MEDULLOBLASTOMA
     Dosage: PO
     Route: 048
  2. METHOTREXATE [Suspect]
     Indication: MEDULLOBLASTOMA
     Dosage: 200 MG/KG;PRN; 400 MG/KG PRN
  3. CISPLATIN [Suspect]
     Indication: MEDULLOBLASTOMA
     Dosage: 3.5MG/KG;PRN
  4. CYCLOPHOSPHAMIDE [Suspect]
     Indication: MEDULLOBLASTOMA
     Dosage: 3.5 MG/KG; PRN
  5. ETOPOSIDE [Suspect]
     Indication: MEDULLOBLASTOMA
     Dosage: PRN;PO
     Route: 048
  6. VINCRISTINE [Suspect]
     Indication: MEDULLOBLASTOMA
     Dosage: PRN

REACTIONS (12)
  - ALANINE AMINOTRANSFERASE INCREASED [None]
  - ASCITES [None]
  - BLOOD BILIRUBIN INCREASED [None]
  - BONE MARROW FAILURE [None]
  - DRUG DOSE OMISSION [None]
  - DRUG LEVEL DECREASED [None]
  - DRUG TOXICITY [None]
  - HEPATOMEGALY [None]
  - MUCOSAL INFLAMMATION [None]
  - PROTHROMBIN TIME PROLONGED [None]
  - RENAL FAILURE ACUTE [None]
  - VOMITING [None]
